FAERS Safety Report 9061079 (Version 2)
Quarter: 2013Q1

REPORT INFORMATION
  Report Type: Spontaneous
  Country: US (occurrence: US)
  Receive Date: 20130213
  Receipt Date: 20130215
  Transmission Date: 20140127
  Serious: No
  Sender: FDA-Public Use
  Company Number: US-BIOGENIDEC-2013BI011216

PATIENT
  Age: 49 Year
  Sex: Female

DRUGS (1)
  1. TYSABRI [Suspect]
     Indication: MULTIPLE SCLEROSIS
     Route: 042
     Dates: start: 20071128

REACTIONS (5)
  - Influenza like illness [Recovered/Resolved]
  - Migraine [Recovered/Resolved]
  - Visual impairment [Recovered/Resolved]
  - Pain [Recovered/Resolved]
  - Multiple sclerosis relapse [Recovered/Resolved]
